FAERS Safety Report 8409253-6 (Version None)
Quarter: 2012Q2

REPORT INFORMATION
  Report Type: 
  Country: None (occurrence: None)
  Receive Date: 20120604
  Receipt Date: 20120516
  Transmission Date: 20120825
  Serious: No
  Sender: FDA-Public Use
  Company Number: US-ASTRAZENECA-2010SE26460

PATIENT
  Age: 63 Year
  Sex: Female

DRUGS (10)
  1. COX 10 [Concomitant]
  2. SIMVASTATIN [Concomitant]
  3. LISINOPRIL [Suspect]
     Route: 048
  4. HYDROCHLOROTHIAZIDE [Suspect]
     Route: 065
  5. METOPROLOL TARTRATE [Concomitant]
  6. XANAX [Concomitant]
  7. RHINOCORT [Suspect]
     Route: 045
  8. DICYCLOMINE [Concomitant]
  9. NEXIUM [Suspect]
     Route: 048
  10. CODEINE [Suspect]
     Route: 065

REACTIONS (5)
  - GALLBLADDER PAIN [None]
  - OESOPHAGEAL PAIN [None]
  - NEPHROPATHY [None]
  - INTENTIONAL DRUG MISUSE [None]
  - HEADACHE [None]
